FAERS Safety Report 13724582 (Version 3)
Quarter: 2017Q4

REPORT INFORMATION
  Report Type: Spontaneous
  Country: US (occurrence: US)
  Receive Date: 20170706
  Receipt Date: 20171205
  Transmission Date: 20180320
  Serious: Yes (Hospitalization)
  Sender: FDA-Public Use
  Company Number: US-LEADIANT BIOSCIENCES, INC.-2017STPI000504

PATIENT
  Age: 31 Year
  Sex: Male

DRUGS (1)
  1. MATULANE [Suspect]
     Active Substance: PROCARBAZINE HYDROCHLORIDE
     Indication: BRAIN NEOPLASM MALIGNANT
     Dosage: 150 MG, ONCE DAILY, ON DAYS 8 TO 21
     Route: 048
     Dates: start: 20170207, end: 201706

REACTIONS (1)
  - Neurological infection [Recovered/Resolved]

NARRATIVE: CASE EVENT DATE: 20170608
